FAERS Safety Report 13739084 (Version 2)
Quarter: 2018Q2

REPORT INFORMATION
  Report Type: Spontaneous
  Country: US (occurrence: US)
  Receive Date: 20170710
  Receipt Date: 20180627
  Transmission Date: 20180711
  Serious: Yes (Other)
  Sender: FDA-Public Use
  Company Number: US-SAOL THERAPEUTICS-2017SAO00888

PATIENT
  Age: 71 Year
  Sex: Male
  Weight: 82.99 kg

DRUGS (42)
  1. BUPIVACAINE. [Suspect]
     Active Substance: BUPIVACAINE
     Dosage: 2.6 MG, \DAY
     Route: 037
  2. ANDROGEN [Concomitant]
     Active Substance: UNSPECIFIED INGREDIENT
  3. REGLAN [Concomitant]
     Active Substance: METOCLOPRAMIDE HYDROCHLORIDE
  4. BACLOFEN. [Suspect]
     Active Substance: BACLOFEN
     Dosage: 12.999 ?G, \DAY
     Route: 037
     Dates: start: 20170301
  5. BACLOFEN. [Suspect]
     Active Substance: BACLOFEN
     Dosage: 17.123 ?G, \DAY; TOTAL MAX DAILY DOSE
     Route: 037
     Dates: start: 20170726, end: 20170905
  6. BUPIVACAINE. [Suspect]
     Active Substance: BUPIVACAINE
     Dosage: 10.289 MG, \DAY; TOTAL MAX DAILY DOSE
     Route: 037
     Dates: start: 20170301
  7. DILAUDID [Suspect]
     Active Substance: HYDROMORPHONE HYDROCHLORIDE
     Dosage: 2.599 MG, \DAY
     Route: 037
     Dates: start: 20170301
  8. CRESTOR [Concomitant]
     Active Substance: ROSUVASTATIN CALCIUM
  9. BACLOFEN. [Suspect]
     Active Substance: BACLOFEN
     Dosage: 14.217 ?G, \DAY; TOTAL MAX DAILY DOSE
     Route: 037
     Dates: start: 20170123, end: 20170301
  10. BACLOFEN. [Suspect]
     Active Substance: BACLOFEN
     Dosage: 14.105 ?G, \DAY
     Route: 037
     Dates: start: 20170726, end: 20170905
  11. BUPIVACAINE. [Suspect]
     Active Substance: BUPIVACAINE
     Dosage: 8.7 MG, \DAY
     Route: 037
  12. BUPIVACAINE. [Suspect]
     Active Substance: BUPIVACAINE
     Dosage: 9.172 MG, \DAY; TOTAL MAX DAILY DOSE
     Route: 037
     Dates: start: 20170123, end: 20170301
  13. BUPIVACAINE. [Suspect]
     Active Substance: BUPIVACAINE
     Dosage: 9.012 MG, \DAY; TOTAL MAX DAILY DOSE
     Route: 037
     Dates: start: 20170726, end: 20170905
  14. DILAUDID [Suspect]
     Active Substance: HYDROMORPHONE HYDROCHLORIDE
     Dosage: 2.843 MG, \DAY; TOTAL MAXIMUM DAILY DOSE
     Route: 037
     Dates: start: 20170123, end: 20170301
  15. COMPOUNDED BACLOFEN [Suspect]
     Active Substance: BACLOFEN
     Dosage: 21.136 ?G, \DAY
     Route: 037
     Dates: start: 20170905
  16. BUPIVACAINE. [Suspect]
     Active Substance: BUPIVACAINE
     Dosage: 11.124 MG, \DAY
     Route: 037
     Dates: start: 20170905
  17. COMPOUNDED BACLOFEN [Suspect]
     Active Substance: BACLOFEN
     Dosage: 24.130 ?G, \DAY; TOTAL MAX DAILY DOSE
     Route: 037
     Dates: start: 20170905
  18. BACLOFEN. [Suspect]
     Active Substance: BACLOFEN
     Dosage: 11.261 ?G, \DAY
     Route: 037
     Dates: start: 20170123, end: 20170301
  19. BUPIVACAINE. [Suspect]
     Active Substance: BUPIVACAINE
     Dosage: 7.265 MG, \DAY
     Route: 037
     Dates: start: 20170123, end: 20170301
  20. BUPIVACAINE. [Suspect]
     Active Substance: BUPIVACAINE
     Dosage: 8.387 MG, \DAY
     Route: 037
     Dates: start: 20170301
  21. DILAUDID [Suspect]
     Active Substance: HYDROMORPHONE HYDROCHLORIDE
     Dosage: 2.793 MG, \DAY; TOTAL MAXIMUM DAILY DOSE
     Route: 037
     Dates: start: 20170726, end: 20170905
  22. BACLOFEN. [Concomitant]
     Active Substance: BACLOFEN
  23. BACLOFEN. [Suspect]
     Active Substance: BACLOFEN
     Dosage: 4.7 ?G, \DAY
     Route: 037
  24. BUPIVACAINE. [Suspect]
     Active Substance: BUPIVACAINE
     Dosage: 7.424 MG, \DAY
     Route: 037
     Dates: start: 20170726, end: 20170905
  25. BUPIVACAINE. [Suspect]
     Active Substance: BUPIVACAINE
     Dosage: 12.7 MG, \DAY; TOTAL MAX DAILY DOSE
     Route: 037
     Dates: start: 20170905
  26. DILAUDID [Suspect]
     Active Substance: HYDROMORPHONE HYDROCHLORIDE
     Dosage: 2.252 MG, \DAY
     Route: 037
     Dates: start: 20170123, end: 20170301
  27. DILAUDID [Suspect]
     Active Substance: HYDROMORPHONE HYDROCHLORIDE
     Dosage: 2.301 MG, \DAY
     Route: 037
     Dates: start: 20170726, end: 20170905
  28. HYDROCODONE [Concomitant]
     Active Substance: HYDROCODONE
  29. UNSPECIFIED MEDICATION [Concomitant]
     Active Substance: UNSPECIFIED INGREDIENT
  30. BACLOFEN. [Suspect]
     Active Substance: BACLOFEN
     Dosage: 13.5 ?G, \DAY
     Route: 037
  31. DILAUDID [Suspect]
     Active Substance: HYDROMORPHONE HYDROCHLORIDE
     Dosage: 2.7 MG, \DAY
     Route: 037
  32. DILAUDID [Suspect]
     Active Substance: HYDROMORPHONE HYDROCHLORIDE
     Dosage: 3.448 MG, \DAY
     Route: 037
     Dates: start: 20170905
  33. DILAUDID [Suspect]
     Active Substance: HYDROMORPHONE HYDROCHLORIDE
     Dosage: 3.937 MG, \DAY; TOTAL MAXIMUM DAILY DOSE
     Route: 037
     Dates: start: 20170905
  34. DILAUDID [Suspect]
     Active Substance: HYDROMORPHONE HYDROCHLORIDE
     Dosage: 0.765 MG, \DAY
     Route: 037
  35. BACLOFEN. [Suspect]
     Active Substance: BACLOFEN
     Dosage: 15.948 ?G, \DAY; TOTAL MAX DAILY DOSE
     Route: 037
     Dates: start: 20170301
  36. DILAUDID [Suspect]
     Active Substance: HYDROMORPHONE HYDROCHLORIDE
     Dosage: 3.189 MG, \DAY; TOTAL MAXIMUM DAILY DOSE
     Route: 037
     Dates: start: 20170301
  37. ZANTAC [Concomitant]
     Active Substance: RANITIDINE HYDROCHLORIDE
  38. DEPO-TESTOSTERONE [Concomitant]
     Active Substance: TESTOSTERONE CYPIONATE
  39. PRILOSEC [Concomitant]
     Active Substance: OMEPRAZOLE MAGNESIUM
  40. BUPROPION. [Concomitant]
     Active Substance: BUPROPION
  41. FLUOXETINE [Concomitant]
     Active Substance: FLUOXETINE HYDROCHLORIDE
  42. LYRICA [Concomitant]
     Active Substance: PREGABALIN

REACTIONS (4)
  - Device leakage [Recovered/Resolved]
  - Device dislocation [Recovered/Resolved]
  - Therapy non-responder [Recovered/Resolved]
  - Pain [Recovered/Resolved]

NARRATIVE: CASE EVENT DATE: 20170516
